FAERS Safety Report 5527192-5 (Version None)
Quarter: 2007Q4

REPORT INFORMATION
  Report Type: 
  Country: None (occurrence: None)
  Receive Date: 20071121
  Receipt Date: 20071108
  Transmission Date: 20080405
  Serious: Yes (Disabling, Other)
  Sender: FDA-Public Use
  Company Number: MC200700697

PATIENT
  Age: 58 Year
  Sex: Male

DRUGS (1)
  1. ANGIOMAX [Suspect]
     Indication: CARDIAC ABLATION
     Dates: start: 20050720

REACTIONS (2)
  - CEREBROVASCULAR ACCIDENT [None]
  - HAEMODYNAMIC INSTABILITY [None]
